FAERS Safety Report 6748474-5 (Version None)
Quarter: 2010Q2

REPORT INFORMATION
  Report Type: 
  Country: None (occurrence: None)
  Receive Date: 20100527
  Receipt Date: 20100527
  Transmission Date: 20101027
  Serious: Yes (Other)
  Sender: FDA-Public Use
  Company Number: None

PATIENT
  Sex: Female
  Weight: 65.9 kg

DRUGS (1)
  1. ADDERALL 20 [Suspect]
     Indication: ATTENTION DEFICIT/HYPERACTIVITY DISORDER
     Dosage: 20MG TID ORAL
     Route: 048
     Dates: start: 20090601, end: 20090801

REACTIONS (3)
  - DRY MOUTH [None]
  - PRODUCT SUBSTITUTION ISSUE [None]
  - VISION BLURRED [None]
